FAERS Safety Report 10563621 (Version 9)
Quarter: 2016Q4

REPORT INFORMATION
  Report Type: Report from Study
  Country: BR (occurrence: BR)
  Receive Date: 20141104
  Receipt Date: 20161102
  Transmission Date: 20170206
  Serious: Yes (Hospitalization, Other)
  Sender: FDA-Public Use
  Company Number: PHHY2014BR143559

PATIENT
  Age: 62 Year
  Sex: Female
  Weight: 50 kg

DRUGS (8)
  1. ACLASTA [Suspect]
     Active Substance: ZOLEDRONIC ACID
     Dosage: 1 DF, Q12MO (1 APPLICATION A YEAR)
     Route: 042
     Dates: start: 20141031
  2. CONDROFLEX [Concomitant]
     Active Substance: CHONDROITIN SULFATE (BOVINE)\GLUCOSAMINE SULFATE
     Indication: OSTEOPOROSIS
     Dosage: 1 DF, QD
     Route: 065
     Dates: start: 2013
  3. ACLASTA [Suspect]
     Active Substance: ZOLEDRONIC ACID
     Dosage: 1 DF, Q12MO
     Route: 042
     Dates: start: 20151223, end: 20151223
  4. DEPURA [Concomitant]
     Active Substance: CHOLECALCIFEROL
     Indication: OSTEOPOROSIS
     Dosage: 6 DRP, QD (BEFORE LUNCH)
     Route: 065
     Dates: start: 2013
  5. CALCIUM + D3 [Concomitant]
     Active Substance: CALCIUM\CHOLECALCIFEROL
     Indication: OSTEOPOROSIS
     Dosage: 1 DF, QD
     Route: 065
     Dates: start: 2013
  6. ACLASTA [Suspect]
     Active Substance: ZOLEDRONIC ACID
     Indication: OSTEOPENIA
     Dosage: 1 DF, Q12MO (1 APPLICATION A YEAR)
     Route: 042
     Dates: start: 20131113, end: 20131113
  7. ACLASTA [Suspect]
     Active Substance: ZOLEDRONIC ACID
     Indication: OSTEOPOROSIS
     Dosage: 1 DF, Q12MO (1 APPLICATION A YEAR)
     Route: 042
     Dates: start: 201205, end: 201205
  8. DORENE [Concomitant]
     Indication: NEURALGIA
     Dosage: 0.5 DF, QD
     Route: 065
     Dates: start: 2013

REACTIONS (10)
  - Fall [Recovering/Resolving]
  - Upper limb fracture [Unknown]
  - Fracture [Recovering/Resolving]
  - Pain in extremity [Unknown]
  - Spinal pain [Recovering/Resolving]
  - Pain [Not Recovered/Not Resolved]
  - Spinal flattening [Unknown]
  - Back pain [Recovering/Resolving]
  - Arthralgia [Unknown]
  - Spinal fracture [Recovering/Resolving]

NARRATIVE: CASE EVENT DATE: 201403
